FAERS Safety Report 15357587 (Version 2)
Quarter: 2018Q4

REPORT INFORMATION
  Report Type: Spontaneous
  Country: JP (occurrence: JP)
  Receive Date: 20180906
  Receipt Date: 20181114
  Transmission Date: 20190204
  Serious: Yes (Death, Hospitalization, Other)
  Sender: FDA-Public Use
  Company Number: JP-SHIRE-JP201832432AA

PATIENT
  Age: 70 Year
  Sex: Male

DRUGS (10)
  1. PREDNISOLONE. [Suspect]
     Active Substance: PREDNISOLONE
     Indication: DERMATOMYOSITIS
     Dosage: 60 MG/DAY; 1.2 MG/KG/DAY
     Route: 065
     Dates: start: 201412, end: 201503
  2. METHYLPREDNISOLONE. [Suspect]
     Active Substance: METHYLPREDNISOLONE
     Indication: DERMATOMYOSITIS
     Dosage: 1,000 MG/DAY FOR 3 DAYS
     Route: 065
     Dates: start: 201412
  3. GAMMAGARD S/D [Suspect]
     Active Substance: HUMAN IMMUNOGLOBULIN G
     Dosage: 20 G/DAY; 400 MG/KG/DAY FOR 5 DAYS
     Route: 042
     Dates: start: 201503, end: 2015
  4. PREDNISOLONE. [Suspect]
     Active Substance: PREDNISOLONE
     Dosage: 70 MG/DAY
     Route: 065
     Dates: start: 2015
  5. METHYLPREDNISOLONE. [Suspect]
     Active Substance: METHYLPREDNISOLONE
     Dosage: 1,000 MG/DAY FOR 3 DAYS
     Route: 065
     Dates: start: 2015
  6. GAMMAGARD S/D [Suspect]
     Active Substance: HUMAN IMMUNOGLOBULIN G
     Indication: DERMATOMYOSITIS
     Dosage: 20 G/DAY; 400 MG/KG/DAY FOR 5 DAYS
     Route: 042
     Dates: start: 201412
  7. GAMMAGARD S/D [Suspect]
     Active Substance: HUMAN IMMUNOGLOBULIN G
     Dosage: 17.5 G/DAY
     Route: 042
     Dates: start: 2015, end: 2015
  8. PREDNISOLONE. [Suspect]
     Active Substance: PREDNISOLONE
     Dosage: 70 MG/DAY
     Route: 042
     Dates: start: 201504, end: 2015
  9. METHYLPREDNISOLONE. [Suspect]
     Active Substance: METHYLPREDNISOLONE
     Dosage: 1,000 MG/DAY FOR 3 DAYS
     Route: 065
     Dates: start: 201504
  10. PREDNISOLONE. [Suspect]
     Active Substance: PREDNISOLONE
     Dosage: 30 MG/DAY
     Route: 065
     Dates: start: 201503, end: 201504

REACTIONS (13)
  - Thrombotic thrombocytopenic purpura [Unknown]
  - Haemolytic anaemia [Unknown]
  - Pleural effusion [Unknown]
  - Thrombocytopenia [Unknown]
  - Gastric cancer [Unknown]
  - Seizure [Unknown]
  - Pancytopenia [Unknown]
  - Myelodysplastic syndrome [Unknown]
  - Altered state of consciousness [Unknown]
  - Cholangitis [Fatal]
  - Septic shock [Fatal]
  - Dermatomyositis [Unknown]
  - Renal impairment [Unknown]

NARRATIVE: CASE EVENT DATE: 2015
